FAERS Safety Report 20091753 (Version 7)
Quarter: 2021Q4

REPORT INFORMATION
  Report Type: Report from Study
  Country: IL (occurrence: IL)
  Receive Date: 20211119
  Receipt Date: 20211222
  Transmission Date: 20220303
  Serious: Yes (Death, Hospitalization)
  Sender: FDA-Public Use
  Company Number: IL-KARYOPHARM-2021KPT001423

PATIENT
  Age: 70 Year
  Sex: Male
  Weight: 55.1 kg

DRUGS (31)
  1. SELINEXOR [Suspect]
     Active Substance: SELINEXOR
     Indication: Non-small cell lung cancer
     Dosage: 60 MG, WEEKLY
     Route: 048
     Dates: start: 20210905, end: 20211114
  2. DOCETAXEL [Suspect]
     Active Substance: DOCETAXEL
     Indication: Non-small cell lung cancer
     Dosage: 130 MG, 1X/3 WEEKS
     Route: 042
     Dates: start: 20210905
  3. DOCETAXEL [Suspect]
     Active Substance: DOCETAXEL
     Dosage: 70 MG, 1X/3 WEEKS
     Route: 042
     Dates: start: 20211017
  4. DOCETAXEL [Suspect]
     Active Substance: DOCETAXEL
     Dosage: 48.24 MG/M2, 1X/3 WEEKS
     Route: 042
     Dates: start: 20211107
  5. OLANZAPINE [Concomitant]
     Active Substance: OLANZAPINE
     Indication: Prophylaxis
     Dosage: 2.5 MG, QD
     Route: 048
     Dates: start: 20210905
  6. JARDIANCE [Concomitant]
     Active Substance: EMPAGLIFLOZIN
     Indication: Diabetes mellitus
     Dosage: 10 MG, QD
     Route: 048
     Dates: start: 2018
  7. ELIQUIS [Concomitant]
     Active Substance: APIXABAN
     Indication: Intermittent claudication
     Dosage: 5 MG, BID
     Route: 048
     Dates: start: 20170109
  8. ATORVASTATIN [Concomitant]
     Active Substance: ATORVASTATIN
     Indication: Lipid metabolism disorder
     Dosage: 40 MG, 2X/WEEK
     Route: 048
     Dates: start: 2019
  9. ALFUZOSIN [Concomitant]
     Active Substance: ALFUZOSIN
     Indication: Prostatomegaly
     Dosage: 10 MG, QD
     Route: 048
     Dates: start: 2016
  10. RAMIPRIL [Concomitant]
     Active Substance: RAMIPRIL
     Indication: Hypertension
     Dosage: 1.25 MG, QD
     Route: 048
     Dates: start: 2019
  11. FOLIC ACID [Concomitant]
     Active Substance: FOLIC ACID
     Indication: Anaemia
     Dosage: 400 UG, QD
     Route: 048
     Dates: start: 2019
  12. FUSID [FUROSEMIDE SODIUM] [Concomitant]
     Indication: Myocardial ischaemia
     Dosage: 40 MG, PRN
     Route: 048
     Dates: start: 2019
  13. ZALDIAR [Concomitant]
     Active Substance: ACETAMINOPHEN\TRAMADOL HYDROCHLORIDE
     Indication: Pain
     Dosage: 362.5 MG, PRN
     Route: 048
     Dates: start: 2021
  14. BISACODYL [Concomitant]
     Active Substance: BISACODYL
     Indication: Constipation
     Dosage: 5 MG, QD
     Route: 048
     Dates: start: 2021
  15. OMEPRAZOLE [Concomitant]
     Active Substance: OMEPRAZOLE
     Indication: Gastritis
     Dosage: 40 MG, QD
     Route: 048
     Dates: start: 20210903
  16. FEXOFENADINE [Concomitant]
     Active Substance: FEXOFENADINE HYDROCHLORIDE
     Indication: Rash
     Dosage: 180 MG, QD
     Route: 048
     Dates: start: 2018
  17. INSULIN GLARGINE [Concomitant]
     Active Substance: INSULIN GLARGINE
     Indication: Diabetes mellitus
     Dosage: 100 IU/ML, QD
     Route: 058
     Dates: start: 2019
  18. NERIDERM [Concomitant]
     Indication: Rash
     Dosage: 30 G, PRN
     Route: 061
     Dates: start: 2015
  19. NERIDERM [Concomitant]
     Indication: Neurodermatitis
  20. METAMIZOLE [Concomitant]
     Active Substance: METAMIZOLE
     Indication: Pain
     Dosage: 200 MG, PRN
     Route: 048
     Dates: start: 20210919
  21. METAMIZOLE [Concomitant]
     Active Substance: METAMIZOLE
     Dosage: 500 DRP, PRN
     Route: 048
  22. METAMIZOLE [Concomitant]
     Active Substance: METAMIZOLE
     Dosage: 500 MG, PRN
     Route: 048
  23. NEXIUM [Concomitant]
     Active Substance: ESOMEPRAZOLE MAGNESIUM
     Indication: Prophylaxis
     Dosage: 20 MG, QD
     Route: 048
     Dates: start: 20210919
  24. DEXAMETHASONE [Concomitant]
     Active Substance: DEXAMETHASONE
     Indication: Prophylaxis
     Dosage: 8 MG, BID
     Route: 048
     Dates: start: 20211016, end: 20211016
  25. DEXAMETHASONE [Concomitant]
     Active Substance: DEXAMETHASONE
     Dosage: 8 MG, SINGLE
     Route: 042
     Dates: start: 20211017, end: 20211017
  26. DEXAMETHASONE [Concomitant]
     Active Substance: DEXAMETHASONE
     Dosage: 4 MG, SINGLE
     Route: 048
     Dates: start: 20211017, end: 20211017
  27. DEXAMETHASONE [Concomitant]
     Active Substance: DEXAMETHASONE
     Dosage: 8 MG, BID
     Route: 048
     Dates: start: 20211018, end: 20211018
  28. DEXAMETHASONE [Concomitant]
     Active Substance: DEXAMETHASONE
     Dosage: 8 MG, BID
     Route: 048
     Dates: start: 20211106, end: 20211106
  29. DEXAMETHASONE [Concomitant]
     Active Substance: DEXAMETHASONE
     Dosage: 8 MG, SINGLE
     Route: 042
     Dates: start: 20211107, end: 20211107
  30. HYALURONIDASE [Concomitant]
     Active Substance: HYALURONIDASE
     Indication: Product administration interrupted
     Dosage: 150 IU, SINGLE
     Route: 058
     Dates: start: 20211017, end: 20211017
  31. AKYNZEO [Concomitant]
     Active Substance: NETUPITANT\PALONOSETRON HYDROCHLORIDE
     Indication: Prophylaxis
     Dosage: 300 MG, WEEKLY
     Route: 048
     Dates: start: 20211010

REACTIONS (1)
  - Pneumonia [Fatal]

NARRATIVE: CASE EVENT DATE: 20211111
